FAERS Safety Report 16498189 (Version 2)
Quarter: 2019Q3

REPORT INFORMATION
  Report Type: Spontaneous
  Country: HK (occurrence: HK)
  Receive Date: 20190628
  Receipt Date: 20190719
  Transmission Date: 20191004
  Serious: Yes (Other)
  Sender: FDA-Public Use
  Company Number: HK-009507513-1906HKG010226

PATIENT
  Age: 81 Year
  Sex: Female

DRUGS (1)
  1. ALENDRONATE SODIUM. [Suspect]
     Active Substance: ALENDRONATE SODIUM
     Indication: OSTEOPOROSIS
     Dosage: UNK, ON DAILY BASIS FOR 2 WEEKS
     Route: 048

REACTIONS (2)
  - Overdose [Unknown]
  - Osteonecrosis of jaw [Unknown]
